FAERS Safety Report 6953356-X (Version None)
Quarter: 2010Q3

REPORT INFORMATION
  Report Type: 
  Country: None (occurrence: None)
  Receive Date: 20100829
  Receipt Date: 20100610
  Transmission Date: 20110219
  Serious: No
  Sender: FDA-Public Use
  Company Number: US-ABBOTT-10P-163-0650821-00

PATIENT
  Sex: Female

DRUGS (1)
  1. NIASPAN [Suspect]
     Indication: HYPERCHOLESTEROLAEMIA
     Route: 048
     Dates: start: 20100522

REACTIONS (7)
  - BURNING SENSATION [None]
  - COUGH [None]
  - ERYTHEMA [None]
  - FLUSHING [None]
  - HEADACHE [None]
  - MYALGIA [None]
  - PRURITUS [None]
